FAERS Safety Report 20757010 (Version 1)
Quarter: 2022Q2

REPORT INFORMATION
  Report Type: Spontaneous
  Country: US (occurrence: US)
  Receive Date: 20220427
  Receipt Date: 20220427
  Transmission Date: 20220721
  Serious: No
  Sender: FDA-Public Use
  Company Number: US-PFIZER INC-202101312099

PATIENT
  Age: 73 Year
  Sex: Female
  Weight: 52.16 kg

DRUGS (4)
  1. CHANTIX [Suspect]
     Active Substance: VARENICLINE TARTRATE
     Indication: Smoking cessation therapy
     Dosage: 1 MG, 2X/DAY (1 MG IT SAYS ONE TABLET BY MOUTH TWO TIMES A DAY)
     Route: 048
     Dates: start: 20210412
  2. SPIRIVA [Concomitant]
     Active Substance: TIOTROPIUM BROMIDE MONOHYDRATE
  3. WIXELA INHUB [Concomitant]
     Active Substance: FLUTICASONE PROPIONATE\SALMETEROL XINAFOATE
  4. ALBUTEROL [Concomitant]
     Active Substance: ALBUTEROL

REACTIONS (6)
  - Dyspepsia [Unknown]
  - Loss of personal independence in daily activities [Unknown]
  - Abdominal pain upper [Recovered/Resolved]
  - Gastrooesophageal reflux disease [Unknown]
  - Ear disorder [Unknown]
  - Recalled product administered [Unknown]
